FAERS Safety Report 6186793-4 (Version None)
Quarter: 2009Q2

REPORT INFORMATION
  Report Type: 
  Country: None (occurrence: None)
  Receive Date: 20090508
  Receipt Date: 20090508
  Transmission Date: 20091009
  Serious: Yes (Hospitalization)
  Sender: FDA-Public Use
  Company Number: None

PATIENT
  Age: 88 Year
  Sex: Male
  Weight: 100 kg

DRUGS (2)
  1. CARVEDILOL [Suspect]
     Indication: HYPERTENSION
     Dosage: 3.125 MG BID PO
     Route: 048
     Dates: start: 20081030, end: 20090409
  2. TERAZOSIN HCL [Suspect]
     Dosage: 4 MG AT BEDTIME PO
     Route: 048
     Dates: start: 20080803, end: 20090402

REACTIONS (3)
  - FALL [None]
  - SYNCOPE [None]
  - VENTRICULAR TACHYCARDIA [None]
